FAERS Safety Report 4851985-0 (Version None)
Quarter: 2005Q4

REPORT INFORMATION
  Report Type: 
  Country: None (occurrence: None)
  Receive Date: 20051213
  Receipt Date: 20051208
  Transmission Date: 20060501
  Serious: Yes (Life-Threatening)
  Sender: FDA-Public Use
  Company Number: 2005AP06331

PATIENT
  Sex: Male

DRUGS (3)
  1. IRESSA [Suspect]
     Indication: LUNG SQUAMOUS CELL CARCINOMA STAGE UNSPECIFIED
     Route: 048
     Dates: start: 20051116, end: 20051101
  2. CARBOPLATIN [Concomitant]
     Indication: LUNG SQUAMOUS CELL CARCINOMA STAGE UNSPECIFIED
  3. DOCETAXEL [Concomitant]
     Indication: LUNG SQUAMOUS CELL CARCINOMA STAGE UNSPECIFIED

REACTIONS (2)
  - INTERSTITIAL LUNG DISEASE [None]
  - PNEUMONIA [None]
